FAERS Safety Report 17881317 (Version 4)
Quarter: 2021Q2

REPORT INFORMATION
  Report Type: Report from Study
  Country: US (occurrence: US)
  Receive Date: 20200610
  Receipt Date: 20210621
  Transmission Date: 20210717
  Serious: Yes (Hospitalization)
  Sender: FDA-Public Use
  Company Number: US-PFIZER INC-2020222243

PATIENT
  Age: 78 Year
  Sex: Female
  Weight: 60 kg

DRUGS (9)
  1. TRASTUZUMAB. [Suspect]
     Active Substance: TRASTUZUMAB
     Dosage: 252 MG, EVERY 2 WEEKS
     Route: 042
     Dates: start: 20200526
  2. LOVENOX [Concomitant]
     Active Substance: ENOXAPARIN SODIUM
     Dosage: 80 MG, 1X/DAY
     Dates: start: 20200526
  3. MSB0010718C [Suspect]
     Active Substance: AVELUMAB
     Dosage: 640 MG
     Route: 042
     Dates: start: 20200526
  4. LOVENOX [Concomitant]
     Active Substance: ENOXAPARIN SODIUM
     Indication: PULMONARY EMBOLISM
     Dosage: 60 MG
     Dates: start: 20200408, end: 20200509
  5. FLUOROURACIL. [Suspect]
     Active Substance: FLUOROURACIL
     Indication: GASTRIC CANCER STAGE IV
     Dosage: UNK UNK, EVERY 2 WEEKS
     Route: 042
     Dates: start: 20191022
  6. TRASTUZUMAB. [Suspect]
     Active Substance: TRASTUZUMAB
     Indication: GASTRIC CANCER STAGE IV
     Dosage: 252 MG, EVERY 2 WEEKS
     Route: 042
     Dates: start: 20191022
  7. FOLINIC ACID [Suspect]
     Active Substance: LEUCOVORIN
     Indication: GASTRIC CANCER STAGE IV
     Dosage: UNK UNK, EVERY 2 WEEKS
     Route: 042
     Dates: start: 20191022
  8. MSB0010718C [Suspect]
     Active Substance: AVELUMAB
     Indication: GASTRIC CANCER STAGE IV
     Dosage: 640 MG, EVERY 2 WEEKS
     Route: 042
     Dates: start: 20191022
  9. OXALIPLATIN. [Suspect]
     Active Substance: OXALIPLATIN
     Indication: GASTRIC CANCER STAGE IV
     Dosage: UNK UNK, EVERY 2 WEEKS
     Route: 042
     Dates: start: 20191022

REACTIONS (1)
  - Embolism [Recovered/Resolved]

NARRATIVE: CASE EVENT DATE: 20200601
